FAERS Safety Report 16112006 (Version 1)
Quarter: 2019Q2

REPORT INFORMATION
  Report Type: Spontaneous
  Country: US (occurrence: US)
  Receive Date: 20190323
  Receipt Date: 20190323
  Transmission Date: 20190711
  Serious: No
  Sender: FDA-Public Use
  Company Number: None

PATIENT
  Age: 67 Year
  Sex: Female
  Weight: 67.5 kg

DRUGS (9)
  1. FISH OIL [Concomitant]
     Active Substance: FISH OIL
  2. VITAMIN B12 [Concomitant]
     Active Substance: CYANOCOBALAMIN
  3. BIOTIN [Concomitant]
     Active Substance: BIOTIN
  4. TOPROL XL [Suspect]
     Active Substance: METOPROLOL SUCCINATE
     Indication: HYPERTENSION
     Dosage: ?          QUANTITY:1 TABLET(S);?
     Route: 048
     Dates: start: 20180331
  5. PROBIOTIC [Concomitant]
     Active Substance: PROBIOTICS NOS
  6. TOPROL XL [Suspect]
     Active Substance: METOPROLOL SUCCINATE
     Indication: ARRHYTHMIA
     Dosage: ?          QUANTITY:1 TABLET(S);?
     Route: 048
     Dates: start: 20180331
  7. SIMVASTATIN. [Concomitant]
     Active Substance: SIMVASTATIN
  8. BABY ASPIRIN [Concomitant]
     Active Substance: ASPIRIN
  9. MAGNESIUM [Concomitant]
     Active Substance: MAGNESIUM

REACTIONS (8)
  - Product substitution issue [None]
  - Extrasystoles [None]
  - Product quality issue [None]
  - Malaise [None]
  - Hypertension [None]
  - Blood pressure inadequately controlled [None]
  - Presyncope [None]
  - Headache [None]

NARRATIVE: CASE EVENT DATE: 20180411
